FAERS Safety Report 25912909 (Version 1)
Quarter: 2025Q4

REPORT INFORMATION
  Report Type: Spontaneous
  Country: IN (occurrence: IN)
  Receive Date: 20251013
  Receipt Date: 20251013
  Transmission Date: 20260117
  Serious: Yes (Hospitalization)
  Sender: MACLEODS
  Company Number: IN-MLMSERVICE-20250929-PI660171-00201-1

PATIENT

DRUGS (2)
  1. LIDOCAINE [Suspect]
     Active Substance: LIDOCAINE
     Indication: Product used for unknown indication
     Dosage: 3 CC 1.5% PLAIN LIGNOCAINE WITH 5 UG/CC ADRENALINE
     Route: 008
  2. EPINEPHRINE [Suspect]
     Active Substance: EPINEPHRINE
     Indication: Product used for unknown indication
     Dosage: 3 CC 1.5% PLAIN LIGNOCAINE WITH 5 UG/CC ADRENALINE
     Route: 008

REACTIONS (2)
  - Limb discomfort [Recovered/Resolved]
  - Administration site extravasation [Recovered/Resolved]
